FAERS Safety Report 4726774-8 (Version None)
Quarter: 2005Q3

REPORT INFORMATION
  Report Type: 
  Country: None (occurrence: None)
  Receive Date: 20050725
  Receipt Date: 20050421
  Transmission Date: 20060218
  Serious: No
  Sender: FDA-Public Use
  Company Number: USA050496348

PATIENT
  Age: 23 Year
  Sex: Male
  Weight: 84 kg

DRUGS (4)
  1. STRATTERA [Suspect]
     Indication: DISTURBANCE IN ATTENTION
     Dosage: 40 MG/2 DAY
     Dates: start: 20050407
  2. PAXIL [Concomitant]
  3. APO-METOPROLOL (METOPROLOL TARTRATE) [Concomitant]
  4. LORAZEPAM [Concomitant]

REACTIONS (6)
  - ANGER [None]
  - ANOREXIA [None]
  - ANXIETY [None]
  - DYSARTHRIA [None]
  - INSOMNIA [None]
  - MOOD SWINGS [None]
